FAERS Safety Report 11554231 (Version 8)
Quarter: 2016Q4

REPORT INFORMATION
  Report Type: Spontaneous
  Country: US (occurrence: US)
  Receive Date: 20150925
  Receipt Date: 20161207
  Transmission Date: 20170206
  Serious: Yes (Hospitalization)
  Sender: FDA-Public Use
  Company Number: US-ACTELION PHARMACEUTICALS US, INC.-A-NJ2015-119377

PATIENT
  Age: 62 Year
  Sex: Female

DRUGS (7)
  1. TRACLEER [Suspect]
     Active Substance: BOSENTAN
     Indication: PULMONARY ARTERIAL HYPERTENSION
     Dosage: 125 MG, BID
     Route: 048
     Dates: start: 20050627
  2. OXYGEN. [Concomitant]
     Active Substance: OXYGEN
     Dosage: 10 L, UNK
  3. RIOCIGUAT [Concomitant]
     Active Substance: RIOCIGUAT
     Indication: PRODUCT USED FOR UNKNOWN INDICATION
     Dosage: 1.0 MG, UNK
  4. ADCIRCA [Concomitant]
     Active Substance: TADALAFIL
  5. LEVAQUIN [Suspect]
     Active Substance: LEVOFLOXACIN
     Indication: CELLULITIS
     Route: 065
  6. COUMADIN [Concomitant]
     Active Substance: WARFARIN SODIUM
  7. RIOCIGUAT [Concomitant]
     Active Substance: RIOCIGUAT
     Dosage: 1.5 MG, UNK

REACTIONS (12)
  - Cardiac failure congestive [Unknown]
  - Skin discolouration [Unknown]
  - Dyspnoea [Unknown]
  - Hypothyroidism [Unknown]
  - Swelling [Unknown]
  - Formication [Unknown]
  - Diarrhoea [Unknown]
  - Muscle spasms [Unknown]
  - Cystitis [Unknown]
  - Peripheral swelling [Unknown]
  - Cellulitis [Unknown]
  - Pruritus [Unknown]
